FAERS Safety Report 5631668-X (Version None)
Quarter: 2008Q1

REPORT INFORMATION
  Report Type: 
  Country: None (occurrence: None)
  Receive Date: 20080211
  Receipt Date: 20080129
  Transmission Date: 20080703
  Serious: Yes (Death)
  Sender: FDA-Public Use
  Company Number: THYM-1000584

PATIENT
  Age: 57 Year
  Sex: Male
  Weight: 69 kg

DRUGS (5)
  1. THYMOGLOBULIN [Suspect]
     Indication: COMPLICATIONS OF TRANSPLANTED KIDNEY
     Dosage: 60 MG, ONCE, INTRAVENOUS
     Route: 042
     Dates: start: 20070125, end: 20070125
  2. GANCICLOVIR [Concomitant]
  3. SEPTRA [Concomitant]
  4. CIPROFLOXACIN (CIPROFLOXACIN LACTATE) [Concomitant]
  5. ANTIFUNGALS [Concomitant]

REACTIONS (2)
  - HYPOTENSION [None]
  - INFUSION RELATED REACTION [None]
